FAERS Safety Report 6443859-9 (Version None)
Quarter: 2009Q4

REPORT INFORMATION
  Report Type: 
  Country: None (occurrence: None)
  Receive Date: 20091113
  Receipt Date: 20091102
  Transmission Date: 20100525
  Serious: Yes (Hospitalization)
  Sender: FDA-Public Use
  Company Number: 230046J09IRL

PATIENT
  Sex: Female

DRUGS (1)
  1. REBIF [Suspect]
     Indication: DRUG USE FOR UNKNOWN INDICATION
     Dosage: 44 MCG
     Dates: start: 19990401

REACTIONS (3)
  - INJECTION SITE ABSCESS [None]
  - INJECTION SITE CALCIFICATION [None]
  - INJECTION SITE NERVE DAMAGE [None]
